FAERS Safety Report 5097108-7 (Version None)
Quarter: 2006Q3

REPORT INFORMATION
  Report Type: 
  Country: None (occurrence: None)
  Receive Date: 20060906
  Receipt Date: 20060811
  Transmission Date: 20061208
  Serious: Yes (Disabling)
  Sender: FDA-Public Use
  Company Number: PHRM2006FR02354

PATIENT
  Age: 70 Year
  Sex: Female
  Weight: 50 kg

DRUGS (8)
  1. STALEVO 100 [Suspect]
     Indication: PARKINSON'S DISEASE
     Dosage: STALEVO 200/150/37.5 ONCE DAILY
     Route: 048
  2. MAGNE B6 [Suspect]
     Dosage: 1 TABLET, TID
     Route: 048
     Dates: start: 20060628, end: 20060630
  3. REQUIP [Concomitant]
  4. ASPIRIN [Concomitant]
  5. PARIET [Concomitant]
  6. STALEVO 100 [Suspect]
     Dosage: STALEVO 200/100/25, 4 TABLETS DAILY
     Route: 048
  7. ACTONEL [Concomitant]
  8. ETIOVEN [Concomitant]

REACTIONS (6)
  - BALANCE DISORDER [None]
  - COGWHEEL RIGIDITY [None]
  - CONDITION AGGRAVATED [None]
  - DRUG INTERACTION [None]
  - GAIT DISTURBANCE [None]
  - GENERAL PHYSICAL HEALTH DETERIORATION [None]
